FAERS Safety Report 5828594-X (Version None)
Quarter: 2008Q3

REPORT INFORMATION
  Report Type: 
  Country: None (occurrence: None)
  Receive Date: 20080729
  Receipt Date: 20080729
  Transmission Date: 20090109
  Serious: Yes (Other)
  Sender: FDA-Public Use
  Company Number: None

PATIENT
  Age: 49 Year
  Sex: Male
  Weight: 74.8435 kg

DRUGS (2)
  1. WARFARIN SODIUM [Suspect]
     Indication: DEEP VEIN THROMBOSIS
     Dosage: 3MG DAILY PO
     Route: 048
     Dates: start: 20080626, end: 20080717
  2. WARFARIN SODIUM [Suspect]
     Indication: PULMONARY EMBOLISM
     Dosage: 3MG DAILY PO
     Route: 048
     Dates: start: 20080626, end: 20080717

REACTIONS (1)
  - SKIN EXFOLIATION [None]
